FAERS Safety Report 8250989-8 (Version None)
Quarter: 2012Q2

REPORT INFORMATION
  Report Type: 
  Country: None (occurrence: None)
  Receive Date: 20120402
  Receipt Date: 20120329
  Transmission Date: 20120825
  Serious: No
  Sender: FDA-Public Use
  Company Number: US-PFIZER INC-2012080662

PATIENT
  Sex: Female
  Weight: 59.864 kg

DRUGS (6)
  1. CYTOMEL [Concomitant]
     Indication: THYROID DISORDER
     Dosage: 5 UG, DAILY
  2. LYRICA [Suspect]
     Indication: NEURALGIA
  3. LYRICA [Suspect]
     Indication: FIBROMYALGIA
  4. LEVOXYL [Concomitant]
     Indication: THYROID DISORDER
     Dosage: 88 UG, DAILY
  5. LYRICA [Suspect]
     Indication: RADICULOPATHY
     Dosage: 25 MG, DAILY
     Dates: start: 20120327, end: 20120329
  6. LYRICA [Suspect]
     Indication: INSOMNIA

REACTIONS (3)
  - SOMNOLENCE [None]
  - FATIGUE [None]
  - DRUG INEFFECTIVE [None]
